FAERS Safety Report 11719804 (Version 2)
Quarter: 2016Q4

REPORT INFORMATION
  Report Type: Report from Study
  Country: None (occurrence: BR)
  Receive Date: 20151110
  Receipt Date: 20161102
  Transmission Date: 20170206
  Serious: Yes (Death, Hospitalization, Other)
  Sender: FDA-Public Use
  Company Number: BR-ABBVIE-15K-020-1496137-00

PATIENT
  Sex: Female
  Weight: 50 kg

DRUGS (7)
  1. NEOSALDINA [Concomitant]
     Active Substance: CAFFEINE\ISOMETHEPTENE\METHIMAZOLE
     Indication: HEADACHE
     Dosage: IF PAIN
     Route: 048
  2. ASPIRINA PREVENT [Concomitant]
     Active Substance: ASPIRIN
     Indication: ANTICOAGULANT THERAPY
     Dosage: 1 OR 2 TABLETS PER DAY
     Route: 048
  3. HUMIRA [Suspect]
     Active Substance: ADALIMUMAB
     Indication: RHEUMATOID ARTHRITIS
     Route: 058
     Dates: start: 20150515, end: 201604
  4. PURAN [Concomitant]
     Active Substance: LEVOTHYROXINE SODIUM
     Indication: THYROID DISORDER
     Route: 048
  5. OMEGA 3 [Concomitant]
     Active Substance: OMEGA-3 FATTY ACIDS
     Indication: PRODUCT USED FOR UNKNOWN INDICATION
     Route: 048
  6. CLONAZEPAM. [Concomitant]
     Active Substance: CLONAZEPAM
     Indication: SLEEP DISORDER THERAPY
     Dosage: 10 OR 15 DROPS
     Route: 048
  7. DORFLEX [Concomitant]
     Active Substance: CAFFEINE\DIPYRONE\ORPHENADRINE
     Indication: PAIN
     Dosage: IF PAIN
     Route: 048

REACTIONS (7)
  - Anaemia [Recovering/Resolving]
  - Gastrointestinal fistula [Fatal]
  - Intestinal perforation [Unknown]
  - Abdominal hernia [Not Recovered/Not Resolved]
  - Syncope [Recovering/Resolving]
  - Alopecia [Recovering/Resolving]
  - Haematemesis [Unknown]

NARRATIVE: CASE EVENT DATE: 2015
